FAERS Safety Report 7373142-9 (Version None)
Quarter: 2011Q1

REPORT INFORMATION
  Report Type: 
  Country: None (occurrence: None)
  Receive Date: 20110324
  Receipt Date: 20110317
  Transmission Date: 20110831
  Serious: Yes (Other)
  Sender: FDA-Public Use
  Company Number: US-PFIZER INC-2011059348

PATIENT
  Sex: Female
  Weight: 79.37 kg

DRUGS (6)
  1. TIKOSYN [Concomitant]
     Indication: CARDIAC DISORDER
     Dosage: 250 MG, 2X/DAY
  2. NEURONTIN [Suspect]
     Indication: PAIN IN EXTREMITY
     Dosage: 600 MG, 1X/DAY
     Route: 048
  3. VALSARTAN [Concomitant]
     Indication: BLOOD PRESSURE ABNORMAL
     Dosage: 8 MG, 1X/DAY
  4. PROPRANOLOL [Concomitant]
     Indication: CARDIAC DISORDER
     Dosage: 25 MG, 1X/DAY
  5. ALPRAZOLAM [Concomitant]
     Indication: ANXIETY
     Dosage: 0.25 MG, 3X/DAY
  6. LORTAB [Concomitant]
     Indication: PAIN
     Dosage: 10/500

REACTIONS (6)
  - FATIGUE [None]
  - BALANCE DISORDER [None]
  - ANXIETY [None]
  - COORDINATION ABNORMAL [None]
  - PAIN IN EXTREMITY [None]
  - SOMNOLENCE [None]
